FAERS Safety Report 9240614 (Version 1)
Quarter: 2013Q2

REPORT INFORMATION
  Report Type: Report from Study
  Country: DK (occurrence: DK)
  Receive Date: 20130418
  Receipt Date: 20130418
  Transmission Date: 20140414
  Serious: Yes (Hospitalization)
  Sender: FDA-Public Use
  Company Number: DK-PFIZER INC-2013117994

PATIENT
  Age: 57 Year
  Sex: Male

DRUGS (3)
  1. CYTARABINE [Suspect]
     Indication: ACUTE MYELOID LEUKAEMIA
     Dosage: 6.6 G, CYCLIC
     Route: 042
     Dates: start: 20121011, end: 20121015
  2. DASATINIB [Suspect]
     Indication: ACUTE MYELOID LEUKAEMIA
     Dosage: 100 MG, CYCLIC
     Route: 048
     Dates: start: 20121016, end: 20121107
  3. DAUNORUBICIN HYDROCHLORIDE [Suspect]
     Indication: ACUTE MYELOID LEUKAEMIA
     Dosage: 396 MG, CYCLICAL, INDUCTION CYCLE
     Route: 042
     Dates: start: 20120605, end: 20120607

REACTIONS (1)
  - Cellulitis [Recovered/Resolved]
